FAERS Safety Report 7725830-X (Version None)
Quarter: 2011Q3

REPORT INFORMATION
  Report Type: 
  Country: None (occurrence: None)
  Receive Date: 20110830
  Receipt Date: 20110815
  Transmission Date: 20111222
  Serious: Yes (Hospitalization)
  Sender: FDA-Public Use
  Company Number: JPI-P-016613

PATIENT
  Age: 61 Year
  Sex: Female
  Weight: 71.2147 kg

DRUGS (1)
  1. XYREM [Suspect]
     Indication: SOMNOLENCE
     Dosage: ORAL; 6 GM (3 GM, 2 IN 1 D), ORAL
     Route: 048
     Dates: start: 20100325

REACTIONS (2)
  - ANXIETY [None]
  - DEPRESSION [None]
